FAERS Safety Report 4724931-8 (Version None)
Quarter: 2005Q3

REPORT INFORMATION
  Report Type: 
  Country: None (occurrence: None)
  Receive Date: 20050726
  Receipt Date: 20050705
  Transmission Date: 20060218
  Serious: Yes (Hospitalization)
  Sender: FDA-Public Use
  Company Number: IT-ROCHE-409964

PATIENT
  Age: 83 Year
  Sex: Female

DRUGS (7)
  1. XENICAL [Suspect]
     Indication: OBESITY
     Route: 048
     Dates: start: 20050516, end: 20050616
  2. ASPIRIN [Suspect]
     Indication: CEREBRAL ISCHAEMIA
     Route: 048
     Dates: start: 20030101, end: 20050616
  3. ZESTORETIC [Concomitant]
  4. ZESTRIL [Concomitant]
  5. PREVEX (FELODIPINE) [Concomitant]
  6. GLYBURIDE [Concomitant]
  7. SEQUACOR [Concomitant]

REACTIONS (3)
  - AUTOIMMUNE DISORDER [None]
  - HAEMATURIA [None]
  - THROMBOCYTOPENIA [None]
